FAERS Safety Report 8758653 (Version 2)
Quarter: 2013Q2

REPORT INFORMATION
  Report Type: Spontaneous
  Country: US (occurrence: None)
  Receive Date: 20120809
  Receipt Date: 20130611
  Transmission Date: 20140414
  Serious: Yes (Other)
  Sender: FDA-Public Use
  Company Number: 2012PROUSA01729

PATIENT
  Age: 64 Year
  Sex: Male
  Weight: 138.8 kg

DRUGS (15)
  1. PROVENGE [Suspect]
     Indication: PROSTATE CANCER METASTATIC
     Route: 042
     Dates: start: 20111028, end: 20111028
  2. CRESTOR (ROSUVASTATIN CALCIUM) [Concomitant]
  3. FISH OIL NATURE MADE (FISH OIL) [Concomitant]
  4. FLUTAMIDE (FLUTAMIDE) [Concomitant]
  5. LISINOPRIL (LISINOPRIL) [Concomitant]
  6. MULTIPLE VITAMIN (MULTIVITAMIN) [Concomitant]
  7. NIACIN (NICOTINIC ACID) [Concomitant]
  8. VITAMIN C [Concomitant]
  9. VITAMIN D (ERGOCALCIFEROL) [Concomitant]
  10. ABILIFY (ARIPIPRAZOLE) [Concomitant]
  11. AMLODIPINE BESYLATE (AMLODIPINE BESILATE) [Concomitant]
  12. ATENOLOL (ATENOLOL) [Concomitant]
  13. ZYTIGA (ABIRATERONE ACETATE) [Concomitant]
  14. PREDNISONE (PREDNISONE) [Concomitant]
  15. XGEVA (DENOSUMAB) [Concomitant]

REACTIONS (9)
  - Transient ischaemic attack [None]
  - Glucose tolerance impaired [None]
  - Polyneuropathy [None]
  - Intervertebral disc degeneration [None]
  - Cerebral artery occlusion [None]
  - Prostatic specific antigen increased [None]
  - Oedema peripheral [None]
  - Haematocrit decreased [None]
  - Blood urea increased [None]
